FAERS Safety Report 8141877-6 (Version None)
Quarter: 2012Q1

REPORT INFORMATION
  Report Type: 
  Country: None (occurrence: None)
  Receive Date: 20120216
  Receipt Date: 20120203
  Transmission Date: 20120608
  Serious: Yes (Other)
  Sender: FDA-Public Use
  Company Number: PE-BRISTOL-MYERS SQUIBB COMPANY-16385718

PATIENT
  Age: 45 Year
  Sex: Male

DRUGS (1)
  1. DASATINIB [Suspect]

REACTIONS (4)
  - GASTROINTESTINAL HAEMORRHAGE [None]
  - TUBERCULOSIS [None]
  - ANAEMIA [None]
  - THROMBOCYTOSIS [None]
